FAERS Safety Report 18739592 (Version 1)
Quarter: 2021Q1

REPORT INFORMATION
  Report Type: Spontaneous
  Country: US (occurrence: US)
  Receive Date: 20210114
  Receipt Date: 20210114
  Transmission Date: 20210419
  Serious: Yes (Other)
  Sender: FDA-Public Use
  Company Number: US-BAYER-2021-003557

PATIENT
  Age: 73 Year
  Sex: Male

DRUGS (2)
  1. ALKA?SELTZER PLUS SEVERE SINUS CONGESTION AND COUGH DAY AND NIGHT [Suspect]
     Active Substance: ACETAMINOPHEN\DEXTROMETHORPHAN HYDROBROMIDE\DOXYLAMINE SUCCINATE\PHENYLEPHRINE
     Indication: HYPERSENSITIVITY
     Dosage: 2 DF
     Route: 048
     Dates: start: 20201231, end: 20201231
  2. ALKA?SELTZER PLUS SEVERE SINUS CONGESTION AND COUGH DAY AND NIGHT [Suspect]
     Active Substance: ACETAMINOPHEN\DEXTROMETHORPHAN HYDROBROMIDE\DOXYLAMINE SUCCINATE\PHENYLEPHRINE
     Indication: NASOPHARYNGITIS

REACTIONS (5)
  - Feeding disorder [None]
  - Foreign body in throat [Recovered/Resolved with Sequelae]
  - Oropharyngeal pain [None]
  - Product use complaint [None]
  - Pharyngeal swelling [None]

NARRATIVE: CASE EVENT DATE: 20201231
